FAERS Safety Report 5093785-5 (Version None)
Quarter: 2006Q3

REPORT INFORMATION
  Report Type: 
  Country: None (occurrence: None)
  Receive Date: 20060728
  Receipt Date: 20060516
  Transmission Date: 20061208
  Serious: No
  Sender: FDA-Public Use
  Company Number: 253367

PATIENT
  Age: 68 Year
  Sex: Male
  Weight: 81.6 kg

DRUGS (13)
  1. LEVEMIR [Suspect]
     Indication: INSULIN-REQUIRING TYPE II DIABETES MELLITUS
     Dosage: 36 IU, QD, SUBCUTANEOUS
     Route: 058
     Dates: start: 20060429
  2. COREG [Concomitant]
  3. CORDARONE /00133101/ (AMIODARONE) [Concomitant]
  4. PROSCAR [Concomitant]
  5. FLOMAX /00889901/ (MORNIFLUMATE) [Concomitant]
  6. MONOPRIL [Concomitant]
  7. PLAVIX [Concomitant]
  8. LASIX [Concomitant]
  9. ALDACTONE [Concomitant]
  10. POTASSIUM (POTASSIUM) [Concomitant]
  11. MAGNESIUM (MAGNESIUM) [Concomitant]
  12. AMARYL [Concomitant]
  13. SYNTHROID (LEVOTHYROXINE SOIDUM) [Concomitant]

REACTIONS (1)
  - BLOOD GLUCOSE INCREASED [None]
